FAERS Safety Report 6914360-0 (Version None)
Quarter: 2010Q3

REPORT INFORMATION
  Report Type: 
  Country: None (occurrence: None)
  Receive Date: 20100805
  Receipt Date: 20100805
  Transmission Date: 20110219
  Serious: Yes (Other)
  Sender: FDA-Public Use
  Company Number: None

PATIENT
  Age: 50 Year
  Sex: Female
  Weight: 117.9352 kg

DRUGS (2)
  1. EFFEXOR [Suspect]
     Indication: PREMENSTRUAL SYNDROME
     Dosage: 1 CAPSULE DAILY PO
     Route: 048
     Dates: start: 20100605, end: 20100628
  2. EFFEXOR [Suspect]
     Dosage: 1/4 TABLE DAILY PO
     Route: 048
     Dates: start: 20100629, end: 20100803

REACTIONS (10)
  - CONDITION AGGRAVATED [None]
  - CONTUSION [None]
  - DISTURBANCE IN ATTENTION [None]
  - DIZZINESS [None]
  - DRUG WITHDRAWAL SYNDROME [None]
  - HALLUCINATION, AUDITORY [None]
  - IMPAIRED HEALING [None]
  - LIBIDO DECREASED [None]
  - MIGRAINE [None]
  - NO THERAPEUTIC RESPONSE [None]
